FAERS Safety Report 16755220 (Version 1)
Quarter: 2019Q3

REPORT INFORMATION
  Report Type: Spontaneous
  Country: DE (occurrence: DE)
  Receive Date: 20190829
  Receipt Date: 20190829
  Transmission Date: 20191005
  Serious: Yes (Hospitalization, Other)
  Sender: FDA-Public Use
  Company Number: DE-BAYER-2019-157094

PATIENT
  Age: 27 Year
  Sex: Female
  Weight: 65 kg

DRUGS (1)
  1. JAYDESS [Suspect]
     Active Substance: LEVONORGESTREL
     Dosage: 14 MCG/24HR, CONT
     Route: 015
     Dates: start: 20190514, end: 20190619

REACTIONS (11)
  - Acute abdomen [Recovering/Resolving]
  - Abscess [Recovering/Resolving]
  - Cyst [Recovering/Resolving]
  - Anxiety [Recovering/Resolving]
  - Dyspareunia [Recovering/Resolving]
  - Pelvic inflammatory disease [Recovering/Resolving]
  - Uterine inflammation [Recovering/Resolving]
  - Cyst rupture [Recovering/Resolving]
  - Abdominal pain [Recovering/Resolving]
  - Abdominal adhesions [Recovering/Resolving]
  - Loss of libido [Recovering/Resolving]

NARRATIVE: CASE EVENT DATE: 20190514
